FAERS Safety Report 9310312 (Version 2)
Quarter: 2013Q3

REPORT INFORMATION
  Report Type: Spontaneous
  Country: US (occurrence: US)
  Receive Date: 20130527
  Receipt Date: 20130702
  Transmission Date: 20140515
  Serious: Yes (Hospitalization, Other)
  Sender: FDA-Public Use
  Company Number: US-PFIZER INC-2013160490

PATIENT
  Age: 47 Year
  Sex: Female
  Weight: 74.83 kg

DRUGS (7)
  1. LYRICA [Suspect]
     Indication: NERVE INJURY
     Dosage: 150MG IN THE MORNING, 75MG IN MIDDLE OF THE DAY AND 150MG AT NIGHT
     Dates: start: 2004
  2. LYRICA [Suspect]
     Dosage: 150MG TWO TIMES A DAY AND 75MG ONE TIME A DAY
  3. PREGABALIN [Suspect]
     Dosage: UNK
  4. PRAVASTATIN SODIUM [Concomitant]
     Indication: HYPERTENSION
     Dosage: 40 MG,1X/DAY
  5. FISH OIL [Concomitant]
     Indication: HYPERTENSION
     Dosage: 6000 MG/DAY
  6. VITAMIN D [Concomitant]
     Dosage: 4000 MG/DAY
  7. PRAVACHOL [Concomitant]
     Indication: BLOOD CHOLESTEROL INCREASED
     Dosage: 40 MG, 1X/DAY

REACTIONS (12)
  - Back disorder [Unknown]
  - Rheumatoid arthritis [Unknown]
  - Mental impairment [Unknown]
  - Cardiac disorder [Unknown]
  - Gait disturbance [Unknown]
  - Body height decreased [Unknown]
  - Paraesthesia [Unknown]
  - Dyspnoea [Unknown]
  - Chest discomfort [Unknown]
  - Drug effect incomplete [Unknown]
  - Stress [Unknown]
  - Drug ineffective [Unknown]
